FAERS Safety Report 13495331 (Version 1)
Quarter: 2017Q2

REPORT INFORMATION
  Report Type: Spontaneous
  Country: US (occurrence: US)
  Receive Date: 20170427
  Receipt Date: 20170427
  Transmission Date: 20170830
  Serious: Yes (Other)
  Sender: FDA-Public Use
  Company Number: None

PATIENT
  Age: 12 Year
  Sex: Male
  Weight: 90.9 kg

DRUGS (8)
  1. GUANFACINE. [Concomitant]
     Active Substance: GUANFACINE
  2. METFORMIN [Concomitant]
     Active Substance: METFORMIN HYDROCHLORIDE
  3. ARIPIPRAZOLE. [Suspect]
     Active Substance: ARIPIPRAZOLE
     Indication: MAJOR DEPRESSION
     Route: 048
  4. ZOLOFT [Concomitant]
     Active Substance: SERTRALINE HYDROCHLORIDE
  5. ABILIFY [Concomitant]
     Active Substance: ARIPIPRAZOLE
  6. CLONIDINE. [Concomitant]
     Active Substance: CLONIDINE
  7. GEODON (ZIPRASIDONE HCL) [Concomitant]
  8. PROZAC (FLUOXETINE) [Concomitant]

REACTIONS (10)
  - Aggression [None]
  - Irritability [None]
  - Condition aggravated [None]
  - Intentional self-injury [None]
  - Suicidal ideation [None]
  - Mood swings [None]
  - Tearfulness [None]
  - Emotional disorder [None]
  - Product substitution issue [None]
  - Anger [None]

NARRATIVE: CASE EVENT DATE: 20170415
